FAERS Safety Report 9948551 (Version 2)
Quarter: 2014Q2

REPORT INFORMATION
  Report Type: Report from Study
  Country: US (occurrence: US)
  Receive Date: 20140303
  Receipt Date: 20140415
  Transmission Date: 20141212
  Serious: Yes (Death)
  Sender: FDA-Public Use
  Company Number: US-ROCHE-1358991

PATIENT
  Age: 64 Year
  Sex: Male

DRUGS (1)
  1. XELODA [Suspect]
     Indication: RECTAL CANCER METASTATIC
     Dosage: FOR 14 DAYS, THEN OFF FOR 7 DAYS
     Route: 065

REACTIONS (1)
  - Hepatic failure [Fatal]
